FAERS Safety Report 10182367 (Version 1)
Quarter: 2014Q2

REPORT INFORMATION
  Report Type: Spontaneous
  Country: US (occurrence: None)
  Receive Date: 20140519
  Receipt Date: 20140519
  Transmission Date: 20141212
  Serious: Yes (Hospitalization)
  Sender: FDA-Public Use
  Company Number: None

PATIENT
  Age: 69 Year
  Sex: Female

DRUGS (2)
  1. CYTARABINE [Suspect]
     Dates: end: 20140512
  2. DAUNORUBICIN [Suspect]
     Dates: end: 20140512

REACTIONS (5)
  - Pyrexia [None]
  - Respiratory distress [None]
  - Hypotension [None]
  - Cardio-respiratory arrest [None]
  - Pulseless electrical activity [None]
